FAERS Safety Report 11915989 (Version 2)
Quarter: 2016Q1

REPORT INFORMATION
  Report Type: Spontaneous
  Country: US (occurrence: US)
  Receive Date: 20160114
  Receipt Date: 20160329
  Transmission Date: 20160526
  Serious: No
  Sender: FDA-Public Use
  Company Number: US-009507513-1601USA003945

PATIENT
  Age: 23 Year
  Sex: Female
  Weight: 158.73 kg

DRUGS (2)
  1. NEXPLANON [Suspect]
     Active Substance: ETONOGESTREL
     Dosage: ROD FAILED TO DEPLOY INTO THE PATIENT^S ARM
     Route: 059
     Dates: start: 20160107, end: 20160107
  2. NEXPLANON [Suspect]
     Active Substance: ETONOGESTREL
     Dosage: SECOND ATTEMPT WAS MADE/ ROD FELL OUT ON ITS OWN
     Route: 059
     Dates: start: 20160107, end: 20160107

REACTIONS (4)
  - Product quality issue [Unknown]
  - Device expulsion [Unknown]
  - Device difficult to use [Recovered/Resolved]
  - Implant site pain [Unknown]

NARRATIVE: CASE EVENT DATE: 20160107
